FAERS Safety Report 8801010 (Version 2)
Quarter: 2015Q1

REPORT INFORMATION
  Report Type: Report from Study
  Country: US (occurrence: US)
  Receive Date: 20120920
  Receipt Date: 20150313
  Transmission Date: 20150721
  Serious: Yes (Death)
  Sender: FDA-Public Use
  Company Number: US-ROCHE-1104044

PATIENT
  Sex: Male

DRUGS (8)
  1. AVASTIN [Suspect]
     Active Substance: BEVACIZUMAB
     Indication: RECTAL CANCER
     Route: 042
     Dates: start: 20050601
  2. AVASTIN [Suspect]
     Active Substance: BEVACIZUMAB
     Indication: RECTOSIGMOID CANCER
  3. FOLINIC ACID [Concomitant]
     Active Substance: LEUCOVORIN
  4. IRINOTECAN [Concomitant]
     Active Substance: IRINOTECAN
  5. FLUOROURACIL. [Concomitant]
     Active Substance: FLUOROURACIL
  6. ZOFRAN [Concomitant]
     Active Substance: ONDANSETRON HYDROCHLORIDE
  7. AVASTIN [Suspect]
     Active Substance: BEVACIZUMAB
     Indication: ANAL CANCER
  8. COMPAZINE [Concomitant]
     Active Substance: PROCHLORPERAZINE MALEATE

REACTIONS (5)
  - Disease progression [Unknown]
  - Death [Fatal]
  - Nausea [Unknown]
  - Vomiting [Unknown]
  - Arteriosclerosis coronary artery [Unknown]
